FAERS Safety Report 15480185 (Version 1)
Quarter: 2018Q4

REPORT INFORMATION
  Report Type: Spontaneous
  Country: US (occurrence: US)
  Receive Date: 20181009
  Receipt Date: 20181009
  Transmission Date: 20190205
  Serious: No
  Sender: FDA-Public Use
  Company Number: US-009507513-1809USA008326

PATIENT
  Age: 41 Year
  Sex: Female

DRUGS (7)
  1. LISINOPRIL. [Concomitant]
     Active Substance: LISINOPRIL
     Dosage: 5 MG IN MORNING
  2. INSULIN [Concomitant]
     Active Substance: INSULIN NOS
  3. SYNTHROID [Concomitant]
     Active Substance: LEVOTHYROXINE SODIUM
     Dosage: 0.50 MCG
  4. KLONOPIN [Concomitant]
     Active Substance: CLONAZEPAM
     Dosage: 2 MG TWICE A DAY
  5. LASIX [Concomitant]
     Active Substance: FUROSEMIDE
     Dosage: 20 MG TWICE A WEEK
  6. JANUVIA [Suspect]
     Active Substance: SITAGLIPTIN PHOSPHATE
     Indication: DIABETES MELLITUS
     Dosage: 1 TABLET DAILY
     Route: 048
     Dates: start: 20180904
  7. VALPROIC ACID. [Concomitant]
     Active Substance: VALPROIC ACID
     Dosage: 20 ML TWICE A DAY

REACTIONS (1)
  - Vomiting [Recovered/Resolved]

NARRATIVE: CASE EVENT DATE: 20180918
